FAERS Safety Report 4499185-0 (Version None)
Quarter: 2004Q4

REPORT INFORMATION
  Report Type: 
  Country: None (occurrence: None)
  Receive Date: 20041111
  Receipt Date: 20041108
  Transmission Date: 20050328
  Serious: Yes (Hospitalization)
  Sender: FDA-Public Use
  Company Number: PHBS2004ES14972

PATIENT
  Age: 88 Year
  Sex: Female

DRUGS (2)
  1. TORECAN [Suspect]
     Indication: DIZZINESS
     Dosage: 6.5 MG/DAY
     Route: 048
     Dates: start: 20040819, end: 20040821
  2. DOGMATIL [Concomitant]
     Indication: DIZZINESS
     Dosage: 100 MG/DAY
     Route: 048
     Dates: start: 20040819, end: 20040821

REACTIONS (1)
  - HYPONATRAEMIA [None]
